FAERS Safety Report 9958849 (Version 1)
Quarter: 2014Q1

REPORT INFORMATION
  Report Type: Report from Study
  Country: US (occurrence: US)
  Receive Date: 20140305
  Receipt Date: 20140305
  Transmission Date: 20141002
  Serious: No
  Sender: FDA-Public Use
  Company Number: US-ABBVIE-13P-163-1101625-00

PATIENT
  Age: 76 Year
  Sex: Female

DRUGS (4)
  1. HUMIRA [Suspect]
     Indication: RHEUMATOID ARTHRITIS
     Dates: start: 2003
  2. PLAQUENIL [Concomitant]
     Indication: PRODUCT USED FOR UNKNOWN INDICATION
  3. LABETALOL [Concomitant]
     Indication: PRODUCT USED FOR UNKNOWN INDICATION
  4. CLONIDINE [Concomitant]
     Indication: PRODUCT USED FOR UNKNOWN INDICATION

REACTIONS (2)
  - Rheumatoid arthritis [Not Recovered/Not Resolved]
  - Bronchitis [Recovering/Resolving]
